FAERS Safety Report 10167395 (Version 1)
Quarter: 2014Q2

REPORT INFORMATION
  Report Type: Spontaneous
  Country: None (occurrence: US)
  Receive Date: 20140512
  Receipt Date: 20140512
  Transmission Date: 20141212
  Serious: Yes (Hospitalization, Other)
  Sender: FDA-Public Use
  Company Number: US-PAR PHARMACEUTICAL, INC-2014SCPR009052

PATIENT
  Sex: 0

DRUGS (3)
  1. VERAPAMIL HCL ER [Suspect]
     Indication: PRODUCT USED FOR UNKNOWN INDICATION
     Dosage: 57 DF, UNK
     Route: 048
  2. AMLODIPINE [Suspect]
     Indication: PRODUCT USED FOR UNKNOWN INDICATION
     Dosage: 30 DF, UNKNOWN
     Route: 048
  3. METOPROLOL [Suspect]
     Indication: PRODUCT USED FOR UNKNOWN INDICATION
     Dosage: 47 DF, UNKNOWN
     Route: 048

REACTIONS (10)
  - Suicide attempt [Unknown]
  - Cardiogenic shock [Recovered/Resolved]
  - Sinus arrest [Recovered/Resolved]
  - Renal failure acute [Recovered/Resolved]
  - Intentional overdose [Unknown]
  - Loss of consciousness [None]
  - Hyperkalaemia [None]
  - Lactic acidosis [None]
  - Hypoglycaemia [None]
  - Intentional overdose [None]
